FAERS Safety Report 4924027-6 (Version None)
Quarter: 2006Q1

REPORT INFORMATION
  Report Type: 
  Country: None (occurrence: None)
  Receive Date: 20060227
  Receipt Date: 20051213
  Transmission Date: 20060701
  Serious: Yes (Other)
  Sender: FDA-Public Use
  Company Number: 2005AC01981

PATIENT
  Age: 44 Year
  Sex: Male
  Weight: 108.4 kg

DRUGS (1)
  1. SEROQUEL [Suspect]
     Indication: SCHIZOPHRENIA
     Dosage: DOSE STARTED MORE THAN ONE YEAR AGO
     Route: 048

REACTIONS (2)
  - DIABETES MELLITUS [None]
  - DYSLIPIDAEMIA [None]
